FAERS Safety Report 6594046-5 (Version None)
Quarter: 2010Q1

REPORT INFORMATION
  Report Type: 
  Country: None (occurrence: None)
  Receive Date: 20100212
  Receipt Date: 20100202
  Transmission Date: 20100710
  Serious: No
  Sender: FDA-Public Use
  Company Number: 2010000687

PATIENT
  Age: 45 Year
  Sex: Female
  Weight: 65.7716 kg

DRUGS (1)
  1. FENTORA [Suspect]
     Indication: PAIN
     Dosage: 1200 MCG (600 MCG, 2 IN 1 D), ORAL; 800 MCG, ORAL
     Route: 048

REACTIONS (19)
  - BONE PAIN [None]
  - COLD SWEAT [None]
  - DIARRHOEA [None]
  - DRUG INEFFECTIVE [None]
  - DRUG LEVEL DECREASED [None]
  - DRUG WITHDRAWAL SYNDROME [None]
  - EXPIRED DRUG ADMINISTERED [None]
  - HYPOPHAGIA [None]
  - INSOMNIA [None]
  - MEDICATION ERROR [None]
  - NAUSEA [None]
  - POOR QUALITY DRUG ADMINISTERED [None]
  - PRODUCT FRIABLE [None]
  - PRODUCT MEASURED POTENCY ISSUE [None]
  - PRODUCT TASTE ABNORMAL [None]
  - TABLET ISSUE [None]
  - TOOTH DISORDER [None]
  - VOMITING [None]
  - WRONG TECHNIQUE IN DRUG USAGE PROCESS [None]
